FAERS Safety Report 8837613 (Version 1)
Quarter: 2012Q4

REPORT INFORMATION
  Report Type: 
  Country: US (occurrence: US)
  Receive Date: 20121012
  Receipt Date: 20121012
  Transmission Date: 20130627
  Serious: Yes (Other)
  Sender: FDA-Public Use
  Company Number: US-ROCHE-1131538

PATIENT
  Sex: Male

DRUGS (13)
  1. RITUXAN [Suspect]
     Indication: CHRONIC LYMPHOCYTIC LEUKAEMIA
     Route: 065
     Dates: start: 19991111
  2. RITUXAN [Suspect]
     Indication: PROSTATE CANCER
     Route: 065
     Dates: start: 19991118
  3. RITUXAN [Suspect]
     Indication: OFF LABEL USE
     Route: 065
     Dates: start: 19991124
  4. BENADRYL [Concomitant]
     Route: 065
     Dates: start: 19991111
  5. BENADRYL [Concomitant]
     Route: 065
     Dates: start: 19991118
  6. BENADRYL [Concomitant]
     Route: 065
     Dates: start: 19991124
  7. HYDROCORTISONE CREAM [Concomitant]
  8. COMPAZINE [Concomitant]
     Route: 065
     Dates: start: 19991111
  9. COMPAZINE [Concomitant]
     Route: 065
     Dates: start: 19991118
  10. COMPAZINE [Concomitant]
     Route: 065
     Dates: start: 19991124
  11. TYLENOL [Concomitant]
     Route: 065
     Dates: start: 19991111
  12. TYLENOL [Concomitant]
     Route: 065
     Dates: start: 19991118
  13. TYLENOL [Concomitant]
     Route: 065
     Dates: start: 19991127

REACTIONS (16)
  - Leukocytosis [Unknown]
  - Asthenia [Unknown]
  - Fatigue [Unknown]
  - Rash [Unknown]
  - Chills [Unknown]
  - Deafness [Unknown]
  - Cough [Unknown]
  - Dyspnoea [Unknown]
  - Arthralgia [Unknown]
  - Joint stiffness [Unknown]
  - Joint swelling [Unknown]
  - Muscular weakness [Unknown]
  - Hypoaesthesia [Unknown]
  - Tremor [Unknown]
  - Alopecia [Unknown]
  - Lymphopenia [Unknown]
